FAERS Safety Report 9562473 (Version 3)
Quarter: 2013Q4

REPORT INFORMATION
  Report Type: Spontaneous
  Country: NL (occurrence: NL)
  Receive Date: 20130927
  Receipt Date: 20131113
  Transmission Date: 20140711
  Serious: Yes (Death)
  Sender: FDA-Public Use
  Company Number: NL-GLAXOSMITHKLINE-B0925371A

PATIENT
  Age: 45 Year
  Sex: Female

DRUGS (2)
  1. CITALOPRAM [Suspect]
     Indication: DEPRESSION
     Dosage: 20MG PER DAY
     Route: 048
     Dates: start: 20130821
  2. PAROXETINE [Suspect]
     Indication: DEPRESSION
     Dosage: 1U PER DAY
     Route: 048
     Dates: start: 20130711, end: 20130821

REACTIONS (7)
  - Drowning [Fatal]
  - Hyponatraemia [Fatal]
  - Completed suicide [Unknown]
  - Hypoxia [Unknown]
  - Brain oedema [Unknown]
  - Subarachnoid haemorrhage [Unknown]
  - Meningitis [Unknown]
